FAERS Safety Report 24995234 (Version 2)
Quarter: 2025Q1

REPORT INFORMATION
  Report Type: Spontaneous
  Country: IN (occurrence: IN)
  Receive Date: 20250221
  Receipt Date: 20250320
  Transmission Date: 20250409
  Serious: Yes (Death)
  Sender: PFIZER
  Company Number: IN-PFIZER INC-202500039519

PATIENT
  Age: 5 Year
  Sex: Male
  Weight: 15 kg

DRUGS (1)
  1. ELELYSO [Suspect]
     Active Substance: TALIGLUCERASE ALFA
     Indication: Gaucher^s disease type III
     Route: 042
     Dates: start: 20230109, end: 20241023

REACTIONS (1)
  - Death [Fatal]

NARRATIVE: CASE EVENT DATE: 20250212
